FAERS Safety Report 6931677-4 (Version None)
Quarter: 2010Q3

REPORT INFORMATION
  Report Type: 
  Country: None (occurrence: None)
  Receive Date: 20100813
  Receipt Date: 20100706
  Transmission Date: 20110219
  Serious: Yes (Other)
  Sender: FDA-Public Use
  Company Number: 1000014892

PATIENT
  Age: 51 Year
  Sex: Female

DRUGS (8)
  1. SAVELLA [Suspect]
     Indication: FIBROMYALGIA
     Dosage: 12.5 MG (12.5 MG,1 IN 1 D), ORAL; 25 MG (12.5 MG,2 IN 1 D), ORAL; 50 MILLICURIES (25  MILLICURIES,2
     Route: 048
     Dates: start: 20100601, end: 20100601
  2. SAVELLA [Suspect]
     Indication: FIBROMYALGIA
     Dosage: 12.5 MG (12.5 MG,1 IN 1 D), ORAL; 25 MG (12.5 MG,2 IN 1 D), ORAL; 50 MILLICURIES (25  MILLICURIES,2
     Route: 048
     Dates: start: 20100601, end: 20100601
  3. SAVELLA [Suspect]
     Indication: FIBROMYALGIA
     Dosage: 12.5 MG (12.5 MG,1 IN 1 D), ORAL; 25 MG (12.5 MG,2 IN 1 D), ORAL; 50 MILLICURIES (25  MILLICURIES,2
     Route: 048
     Dates: start: 20100601, end: 20100601
  4. SAVELLA [Suspect]
     Indication: FIBROMYALGIA
     Dosage: 100 MG (500 MG,2 IN 1 D), ORAL
     Route: 048
     Dates: start: 20100601, end: 20100601
  5. SAVELLA [Suspect]
     Indication: FIBROMYALGIA
     Dosage: 100 MG (500 MG,2 IN 1 D), ORAL
     Route: 048
     Dates: start: 20100601, end: 20100601
  6. BENICAR [Concomitant]
  7. LIPITOR [Concomitant]
  8. WATER PILL (NOS) [Concomitant]

REACTIONS (10)
  - ABDOMINAL PAIN UPPER [None]
  - ARTHRALGIA [None]
  - BURNING SENSATION [None]
  - GAIT DISTURBANCE [None]
  - INSOMNIA [None]
  - MENTAL IMPAIRMENT [None]
  - MYALGIA [None]
  - NIGHTMARE [None]
  - SUICIDAL IDEATION [None]
  - SWELLING [None]
